FAERS Safety Report 10272942 (Version 1)
Quarter: 2014Q2

REPORT INFORMATION
  Report Type: Spontaneous
  Country: US (occurrence: None)
  Receive Date: 20140630
  Receipt Date: 20140630
  Transmission Date: 20141212
  Serious: Yes (Other)
  Sender: FDA-Public Use
  Company Number: UNT-2014-002558

PATIENT
  Age: 70 Year
  Sex: Female
  Weight: 86.2 kg

DRUGS (2)
  1. TYVASO [Suspect]
     Indication: COR PULMONALE CHRONIC
     Route: 055
     Dates: start: 20130319
  2. REVATIO (SILDENAFIL CITRATE) [Concomitant]

REACTIONS (4)
  - Atrial fibrillation [None]
  - Headache [None]
  - Depression [None]
  - Cardiac disorder [None]
